FAERS Safety Report 12283384 (Version 1)
Quarter: 2016Q2

REPORT INFORMATION
  Report Type: Spontaneous
  Country: US (occurrence: US)
  Receive Date: 20160419
  Receipt Date: 20160419
  Transmission Date: 20160815
  Serious: Yes (Other)
  Sender: FDA-Public Use
  Company Number: US-MDT-ADR-2016-00118

PATIENT
  Age: 42 Year
  Sex: Female

DRUGS (1)
  1. COMPOUNDED BACLOFEN [Suspect]
     Active Substance: BACLOFEN
     Route: 037

REACTIONS (6)
  - Staphylococcus test positive [Recovered/Resolved]
  - Implant site infection [Recovered/Resolved]
  - Escherichia test positive [Recovered/Resolved]
  - Implant site pain [Recovered/Resolved]
  - Wound complication [Recovered/Resolved]
  - Medical device site discharge [Recovered/Resolved]
